FAERS Safety Report 8874664 (Version 1)
Quarter: 2012Q4

REPORT INFORMATION
  Report Type: Report from Study
  Country: US (occurrence: US)
  Receive Date: 20121031
  Receipt Date: 20121031
  Transmission Date: 20130627
  Serious: Yes (Hospitalization)
  Sender: FDA-Public Use
  Company Number: US-US-EMD SERONO, INC.-7170943

PATIENT
  Sex: Female

DRUGS (1)
  1. REBIF [Suspect]
     Indication: PRODUCT USED FOR UNKNOWN INDICATION
     Route: 058
     Dates: start: 20021017

REACTIONS (9)
  - Colitis ischaemic [Recovered/Resolved]
  - Blindness transient [Unknown]
  - Visual impairment [Recovering/Resolving]
  - Bladder spasm [Unknown]
  - Vision blurred [Unknown]
  - Muscle spasms [Recovering/Resolving]
  - Injection site bruising [Unknown]
  - Injection site induration [Unknown]
  - Injection site pain [Unknown]
